FAERS Safety Report 7530932-7 (Version None)
Quarter: 2011Q2

REPORT INFORMATION
  Report Type: 
  Country: None (occurrence: None)
  Receive Date: 20110608
  Receipt Date: 20110527
  Transmission Date: 20111010
  Serious: Yes (Hospitalization, Other)
  Sender: FDA-Public Use
  Company Number: CA-ELI_LILLY_AND_COMPANY-CA201105007970

PATIENT
  Sex: Female

DRUGS (9)
  1. PROCHLORPERAZINE TAB [Concomitant]
  2. ALPRAZOLAM [Concomitant]
  3. LIPITOR [Concomitant]
  4. SEROQUEL [Concomitant]
  5. ZYPREXA [Suspect]
     Dosage: 5 MG, EACH EVENING
  6. DILTIAZEM [Concomitant]
  7. EFFEXOR XR [Concomitant]
  8. ZYPREXA [Suspect]
     Indication: BIPOLAR DISORDER
     Dosage: 2.5 MG, UNK
     Dates: start: 20020323
  9. NORTRIPTYLINE HCL [Concomitant]

REACTIONS (10)
  - BLINDNESS [None]
  - RENAL FAILURE [None]
  - MENOMETRORRHAGIA [None]
  - NORMOCHROMIC NORMOCYTIC ANAEMIA [None]
  - HYPERGLYCAEMIA [None]
  - CONVULSION [None]
  - CAROTID ARTERY STENOSIS [None]
  - DIABETES MELLITUS [None]
  - NEUROPATHY PERIPHERAL [None]
  - NON-CARDIAC CHEST PAIN [None]
